FAERS Safety Report 5231344-1 (Version None)
Quarter: 2007Q1

REPORT INFORMATION
  Report Type: 
  Country: None (occurrence: None)
  Receive Date: 20070206
  Receipt Date: 20070131
  Transmission Date: 20070707
  Serious: Yes (Other)
  Sender: FDA-Public Use
  Company Number: 2007UW01976

PATIENT
  Age: 76 Year
  Sex: Female
  Weight: 78.9 kg

DRUGS (4)
  1. ARIMIDEX [Suspect]
     Route: 048
  2. ARIMIDEX [Suspect]
     Route: 048
  3. BLOOD PRESSURE MEDICATION [Suspect]
     Indication: BLOOD PRESSURE MANAGEMENT
  4. BLOOD PRESSURE MEDICATION [Suspect]

REACTIONS (3)
  - ACCIDENTAL OVERDOSE [None]
  - HYPERTENSION [None]
  - MEDICATION ERROR [None]
